FAERS Safety Report 26186458 (Version 1)
Quarter: 2025Q4

REPORT INFORMATION
  Report Type: Spontaneous
  Country: US (occurrence: None)
  Receive Date: 20251219
  Receipt Date: 20251219
  Transmission Date: 20260118
  Serious: Yes (Hospitalization)
  Sender: FDA-CTU
  Company Number: None

PATIENT
  Sex: Female

DRUGS (2)
  1. CYCLOPHOSPHAMIDE [Suspect]
     Active Substance: CYCLOPHOSPHAMIDE
     Indication: Coagulation factor deficiency
     Dosage: FREQUENCY : DAILY;
     Route: 048
     Dates: start: 20251113
  2. BLUNT FILTER NEEDL 18GX1-1/2 [Concomitant]

REACTIONS (2)
  - Fluid retention [None]
  - Dyspnoea [None]
